FAERS Safety Report 5518598-9 (Version None)
Quarter: 2007Q4

REPORT INFORMATION
  Report Type: 
  Country: None (occurrence: None)
  Receive Date: 20071113
  Receipt Date: 20071030
  Transmission Date: 20080405
  Serious: Yes (Other)
  Sender: FDA-Public Use
  Company Number: GXKR2007GB09398

PATIENT
  Age: 64 Year
  Sex: Female
  Weight: 130.1 kg

DRUGS (5)
  1. FLUOXETINE [Suspect]
     Indication: DEPRESSION
     Dosage: 20 MG, QD, ORAL
     Route: 048
     Dates: start: 20060203, end: 20060207
  2. ACETYL SALICYLIC ACID USP BAT [Concomitant]
  3. CORACTEN (NIFEDIPINE) [Concomitant]
  4. ACETAMINOPHEN [Concomitant]
  5. SIMVASTATIN [Concomitant]

REACTIONS (2)
  - CHEST PAIN [None]
  - PALPITATIONS [None]
